FAERS Safety Report 8201155-3 (Version None)
Quarter: 2012Q1

REPORT INFORMATION
  Report Type: 
  Country: None (occurrence: None)
  Receive Date: 20120312
  Receipt Date: 20120307
  Transmission Date: 20120608
  Serious: No
  Sender: FDA-Public Use
  Company Number: US-PFIZER INC-2012061205

PATIENT
  Sex: Female

DRUGS (6)
  1. PREMPRO [Suspect]
     Dosage: UNK
     Dates: start: 20080101
  2. NIFEDIPINE [Concomitant]
     Indication: BLOOD PRESSURE
     Dosage: 90 MG, A.M.
  3. GLYBURIDE [Concomitant]
     Indication: BLOOD GLUCOSE ABNORMAL
     Dosage: 5 MG, A.M.
  4. OXYBUTYNIN CHLORIDE [Concomitant]
     Indication: HYPERTONIC BLADDER
     Dosage: 10 MG, A.M.
  5. ENALAPRIL MALEATE [Concomitant]
     Indication: BLOOD PRESSURE
     Dosage: 5 MG, P.M.
  6. FEMHRT [Concomitant]
     Dosage: UNK

REACTIONS (3)
  - ANXIETY [None]
  - MOOD ALTERED [None]
  - INCORRECT DRUG DOSAGE FORM ADMINISTERED [None]
